FAERS Safety Report 5711066-0 (Version None)
Quarter: 2008Q2

REPORT INFORMATION
  Report Type: 
  Country: None (occurrence: None)
  Receive Date: 20080421
  Receipt Date: 20080411
  Transmission Date: 20081010
  Serious: Yes (Other)
  Sender: FDA-Public Use
  Company Number: GB-BAYER-200810130BNE

PATIENT
  Age: 63 Year
  Sex: Male
  Weight: 77 kg

DRUGS (4)
  1. FLUDARA [Suspect]
     Indication: CHRONIC LYMPHOCYTIC LEUKAEMIA
     Route: 048
     Dates: start: 20071212
  2. FLUDARA [Suspect]
     Dates: start: 20071114
  3. FLUDARA [Suspect]
     Dates: start: 20071017
  4. CYCLOPHOSPHAMIDE [Suspect]
     Indication: CHRONIC LYMPHOCYTIC LEUKAEMIA
     Route: 048

REACTIONS (5)
  - EYE SWELLING [None]
  - HAEMOGLOBIN DECREASED [None]
  - JOINT SWELLING [None]
  - PLATELET COUNT DECREASED [None]
  - SKIN EXFOLIATION [None]
